FAERS Safety Report 21064843 (Version 1)
Quarter: 2022Q3

REPORT INFORMATION
  Report Type: Spontaneous
  Country: ES (occurrence: ES)
  Receive Date: 20220711
  Receipt Date: 20220711
  Transmission Date: 20221026
  Serious: Yes (Hospitalization)
  Sender: FDA-Public Use
  Company Number: None

PATIENT
  Age: 82 Year
  Sex: Male

DRUGS (5)
  1. ALDACTONE [Suspect]
     Active Substance: SPIRONOLACTONE
     Indication: Cardiac failure
     Dosage: 25 MG
     Route: 048
     Dates: start: 20200312, end: 20210322
  2. ALOPURINOL CINFA [Concomitant]
     Indication: Gout
     Dosage: 300 MG
     Route: 048
     Dates: start: 20130123
  3. BISOPROLOL FUMARATE [Concomitant]
     Active Substance: BISOPROLOL FUMARATE
     Indication: Essential hypertension
     Dosage: 2.5 MG
     Route: 048
     Dates: start: 20181201
  4. SIMVASTATINA CINFA [Concomitant]
     Indication: Hyperlipidaemia
     Dosage: 20 MG
     Route: 048
     Dates: start: 20140424
  5. CALCIFEDIOL [Concomitant]
     Active Substance: CALCIFEDIOL
     Indication: Vitamin D decreased
     Dosage: 16000.0 UI /30 DAYS
     Route: 048
     Dates: start: 20190412

REACTIONS (3)
  - Acute kidney injury [Recovered/Resolved]
  - Hyperkalaemia [Recovered/Resolved]
  - Dyspnoea [Recovered/Resolved]

NARRATIVE: CASE EVENT DATE: 20210324
